FAERS Safety Report 16629261 (Version 2)
Quarter: 2019Q4

REPORT INFORMATION
  Report Type: Spontaneous
  Country: US (occurrence: US)
  Receive Date: 20190725
  Receipt Date: 20191022
  Transmission Date: 20200122
  Serious: Yes (Other)
  Sender: FDA-Public Use
  Company Number: US-MALLINCKRODT-T201905039

PATIENT
  Age: 70 Year
  Sex: Female
  Weight: 88 kg

DRUGS (8)
  1. HYDROCODONE/ACETAMINOPHEN [Suspect]
     Active Substance: ACETAMINOPHEN\HYDROCODONE
     Indication: BREAKTHROUGH PAIN
     Dosage: 1-1.5 TABLETS (AROUND 10 MG) FOR UP TO 40 MG A DAY
     Route: 048
  2. REMICADE [Suspect]
     Active Substance: INFLIXIMAB
     Dosage: UNK, RESUMED
     Route: 065
     Dates: start: 2019, end: 2019
  3. PANTOPRAZOLE [Concomitant]
     Active Substance: PANTOPRAZOLE
     Indication: GASTROOESOPHAGEAL REFLUX DISEASE
     Dosage: UNK
     Route: 065
  4. SULFASALAZINE. [Concomitant]
     Active Substance: SULFASALAZINE
     Indication: PSORIATIC ARTHROPATHY
     Dosage: UNK
     Route: 065
  5. REMICADE [Suspect]
     Active Substance: INFLIXIMAB
     Indication: PRODUCT USED FOR UNKNOWN INDICATION
     Dosage: UNK
     Route: 065
     Dates: start: 2019, end: 2019
  6. MELOXICAM. [Concomitant]
     Active Substance: MELOXICAM
     Indication: PSORIATIC ARTHROPATHY
     Dosage: UNK
     Route: 065
  7. FENTANYL TRANSDERMAL SYSTEM [Suspect]
     Active Substance: FENTANYL
     Indication: PAIN
     Dosage: 50 MCG
     Route: 062
     Dates: start: 201907
  8. LYRICA [Suspect]
     Active Substance: PREGABALIN
     Indication: PRODUCT USED FOR UNKNOWN INDICATION
     Dosage: UNK
     Route: 065
     Dates: start: 201906, end: 2019

REACTIONS (13)
  - Spinal nerve stimulator implantation [Unknown]
  - Dyspnoea [Recovered/Resolved]
  - Urticaria [Unknown]
  - Pruritus [Unknown]
  - Nausea [Unknown]
  - Drug ineffective [Not Recovered/Not Resolved]
  - Inflammation [Unknown]
  - Gastrointestinal disorder [Unknown]
  - Intervertebral disc displacement [Unknown]
  - Spinal fusion surgery [Unknown]
  - Diarrhoea [Unknown]
  - Pain [Unknown]
  - Gastric bypass [Unknown]

NARRATIVE: CASE EVENT DATE: 2015
